FAERS Safety Report 7263727-2 (Version None)
Quarter: 2011Q1

REPORT INFORMATION
  Report Type: 
  Country: None (occurrence: None)
  Receive Date: 20110130
  Receipt Date: 20101029
  Transmission Date: 20110831
  Serious: No
  Sender: FDA-Public Use
  Company Number: US-ABBOTT-10P-163-0682317-00

PATIENT
  Sex: Female
  Weight: 87.168 kg

DRUGS (1)
  1. HUMIRA [Suspect]
     Indication: ANKYLOSING SPONDYLITIS
     Dates: start: 20100901

REACTIONS (6)
  - SINUSITIS [None]
  - NASAL CONGESTION [None]
  - CHILLS [None]
  - SPUTUM DISCOLOURED [None]
  - INJECTION SITE HAEMATOMA [None]
  - RASH [None]
